FAERS Safety Report 24256268 (Version 1)
Quarter: 2024Q3

REPORT INFORMATION
  Report Type: Report from Study
  Country: CA (occurrence: CA)
  Receive Date: 20240828
  Receipt Date: 20240828
  Transmission Date: 20241016
  Serious: Yes (Hospitalization, Other)
  Sender: JOHNSON AND JOHNSON
  Company Number: CA-JNJFOC-20240340385

PATIENT
  Age: 63 Year
  Sex: Male

DRUGS (7)
  1. EPOPROSTENOL [Suspect]
     Active Substance: EPOPROSTENOL
     Indication: Pulmonary hypertension
     Route: 042
     Dates: start: 20240304
  2. AMBRISENTAN [Concomitant]
     Active Substance: AMBRISENTAN
  3. FUROSEMIDE [Concomitant]
     Active Substance: FUROSEMIDE
  4. AMLODIPINE [Concomitant]
     Active Substance: AMLODIPINE BESYLATE
  5. PANTOPRAZOLE [Concomitant]
     Active Substance: PANTOPRAZOLE
  6. TADALAFIL [Concomitant]
     Active Substance: TADALAFIL
  7. TINZAPARIN [Concomitant]
     Active Substance: TINZAPARIN

REACTIONS (2)
  - Hospitalisation [Recovering/Resolving]
  - Thrombosis in device [Unknown]
